FAERS Safety Report 16668199 (Version 1)
Quarter: 2019Q3

REPORT INFORMATION
  Report Type: Spontaneous
  Country: BR (occurrence: BR)
  Receive Date: 20190805
  Receipt Date: 20190805
  Transmission Date: 20191004
  Serious: Yes (Death, Hospitalization, Disabling, Other)
  Sender: FDA-Public Use
  Company Number: PHHY2019BR181157

PATIENT
  Age: 80 Year
  Sex: Male

DRUGS (2)
  1. EXELON PATCH [Suspect]
     Active Substance: RIVASTIGMINE
     Indication: DEMENTIA
     Dosage: 4.6 MG, QD (PATCH 5 (CM2), 9 MG RIVASTIGMINE BASE)
     Route: 062
  2. EXELON PATCH [Suspect]
     Active Substance: RIVASTIGMINE
     Dosage: 9.5 MG QD (PATCH 10 (CM2), 18 MG RIVASTIGMINE BASE)
     Route: 062
     Dates: start: 2018

REACTIONS (10)
  - Urinary tract infection [Unknown]
  - Sepsis [Unknown]
  - Urinary retention [Unknown]
  - Bone disorder [Unknown]
  - Diabetes mellitus [Unknown]
  - Urethral stenosis [Unknown]
  - Gait inability [Unknown]
  - Multiple organ dysfunction syndrome [Fatal]
  - Prostate cancer metastatic [Unknown]
  - General physical health deterioration [Unknown]

NARRATIVE: CASE EVENT DATE: 20180612
